FAERS Safety Report 8419337-4 (Version None)
Quarter: 2012Q2

REPORT INFORMATION
  Report Type: 
  Country: None (occurrence: None)
  Receive Date: 20120607
  Receipt Date: 20120523
  Transmission Date: 20120825
  Serious: Yes (Other)
  Sender: FDA-Public Use
  Company Number: IT-ROCHE-795735

PATIENT

DRUGS (7)
  1. PREDNISONE TAB [Suspect]
     Indication: B-CELL LYMPHOMA
     Dosage: 8 DOSES - RCVP ARM, 6 DOSES - RCHOP ARM
     Route: 065
  2. VINCRISTINE [Suspect]
     Indication: B-CELL LYMPHOMA
     Dosage: 8 DOSES - RCVP ARM, 6 DOSES - RCHOP ARM
     Route: 065
  3. MABTHERA [Suspect]
     Indication: B-CELL LYMPHOMA
     Dosage: 8 DOSES - RCVP ARM, 6 DOSES - RCHOP ARM
  4. DOXORUBICIN HCL [Suspect]
     Indication: B-CELL LYMPHOMA
     Route: 065
  5. MITOXANTRONE HYDROCHLORIDE [Suspect]
     Indication: B-CELL LYMPHOMA
     Dosage: DAY 1
     Route: 065
  6. CYCLOPHOSPHAMIDE [Suspect]
     Indication: B-CELL LYMPHOMA
     Dosage: 8 DOSES - RCVP ARM, 6 DOSES - RCHOP ARM
     Route: 065
  7. FLUDARABINE PHOSPHATE [Suspect]
     Indication: B-CELL LYMPHOMA
     Dosage: DAY 1-3
     Route: 065

REACTIONS (2)
  - NEOPLASM MALIGNANT [None]
  - NEUTROPENIA [None]
